FAERS Safety Report 18396660 (Version 2)
Quarter: 2020Q4

REPORT INFORMATION
  Report Type: Spontaneous
  Country: FI (occurrence: FI)
  Receive Date: 20201019
  Receipt Date: 20201022
  Transmission Date: 20210114
  Serious: Yes (Other)
  Sender: FDA-Public Use
  Company Number: FI-TEVA-2020-FI-1839437

PATIENT
  Age: 47 Year
  Sex: Female

DRUGS (6)
  1. BOTOX [Concomitant]
     Active Substance: ONABOTULINUMTOXINA
     Indication: MIGRAINE PROPHYLAXIS
     Route: 030
     Dates: start: 201911
  2. AJOVY [Suspect]
     Active Substance: FREMANEZUMAB-VFRM
     Dates: start: 202010
  3. AJOVY [Suspect]
     Active Substance: FREMANEZUMAB-VFRM
     Dosage: DURING THE SUMMER
  4. AJOVY [Suspect]
     Active Substance: FREMANEZUMAB-VFRM
     Indication: MIGRAINE PROPHYLAXIS
     Route: 058
     Dates: start: 202005
  5. AJOVY [Suspect]
     Active Substance: FREMANEZUMAB-VFRM
     Dosage: TWO INJECTIONS AT THE SAME TIME
     Dates: start: 202009, end: 202009
  6. KLOTRIPTYL MITE [Concomitant]
     Indication: MIGRAINE PROPHYLAXIS
     Dosage: DAILY DOSING
     Route: 048
     Dates: start: 202001, end: 202008

REACTIONS (9)
  - Ear pain [Not Recovered/Not Resolved]
  - Weight decreased [Not Recovered/Not Resolved]
  - Migraine [Not Recovered/Not Resolved]
  - Hemiparaesthesia [Not Recovered/Not Resolved]
  - Facial pain [Not Recovered/Not Resolved]
  - Off label use [Unknown]
  - Arthralgia [Not Recovered/Not Resolved]
  - Eye pain [Not Recovered/Not Resolved]
  - Off label use [Unknown]

NARRATIVE: CASE EVENT DATE: 2020
